FAERS Safety Report 7476042-9 (Version None)
Quarter: 2011Q2

REPORT INFORMATION
  Report Type: 
  Country: None (occurrence: None)
  Receive Date: 20110512
  Receipt Date: 20110503
  Transmission Date: 20111010
  Serious: Yes (Disabling)
  Sender: FDA-Public Use
  Company Number: ES-ASTRAZENECA-2011SE13404

PATIENT
  Age: 22 Year
  Sex: Male

DRUGS (3)
  1. PAROXETINA [Concomitant]
     Route: 048
  2. CLORAZEPATO [Concomitant]
     Route: 048
  3. SEROQUEL XR [Suspect]
     Route: 048
     Dates: start: 20110218, end: 20110228

REACTIONS (2)
  - MYOSITIS [None]
  - BLOOD CREATINE PHOSPHOKINASE INCREASED [None]
